FAERS Safety Report 6525548-5 (Version None)
Quarter: 2009Q4

REPORT INFORMATION
  Report Type: 
  Country: None (occurrence: None)
  Receive Date: 20091224
  Receipt Date: 20091211
  Transmission Date: 20100525
  Serious: Yes (Hospitalization)
  Sender: FDA-Public Use
  Company Number: 008080

PATIENT
  Age: 70 Year
  Sex: Female
  Weight: 46 kg

DRUGS (9)
  1. PLETAL [Suspect]
     Indication: ARTERIOSCLEROSIS OBLITERANS
     Dosage: 50 MG, BID; ORAL
     Route: 048
     Dates: start: 20091028, end: 20091113
  2. TICLOPIDINE HCL [Suspect]
     Indication: VASCULAR PROCEDURE COMPLICATION
     Dosage: 100 MG; BID; ORAL
     Route: 048
     Dates: start: 20091028, end: 20091030
  3. TICLOPIDINE HCL [Suspect]
     Indication: VASCULAR PROCEDURE COMPLICATION
     Dosage: 100 MG; BID; ORAL
     Route: 048
     Dates: start: 20091111, end: 20091113
  4. ASPIRIN [Concomitant]
  5. CRESTOR [Concomitant]
  6. SELBEX (TEPRENONE) [Concomitant]
  7. HANGE-SANSHIN-TO [Concomitant]
  8. AMLODIN OD (AMLODI PINE BESILATE) [Concomitant]
  9. DIOVAN [Concomitant]

REACTIONS (6)
  - ERYTHEMA [None]
  - FEELING ABNORMAL [None]
  - HEPATIC ENZYME INCREASED [None]
  - LIVER DISORDER [None]
  - MALAISE [None]
  - RASH [None]
